FAERS Safety Report 7556066-3 (Version None)
Quarter: 2011Q2

REPORT INFORMATION
  Report Type: 
  Country: None (occurrence: None)
  Receive Date: 20110620
  Receipt Date: 20110609
  Transmission Date: 20111010
  Serious: No
  Sender: FDA-Public Use
  Company Number: US-BIOGENIDEC-2010BI045232

PATIENT
  Sex: Female

DRUGS (2)
  1. TYSABRI [Suspect]
     Indication: MULTIPLE SCLEROSIS
     Route: 042
     Dates: start: 20090923
  2. AVONEX [Concomitant]
     Indication: MULTIPLE SCLEROSIS
     Route: 030
     Dates: start: 20090901

REACTIONS (18)
  - RECTAL DISCHARGE [None]
  - PAIN [None]
  - NERVOUSNESS [None]
  - RASH ERYTHEMATOUS [None]
  - TOOTH INFECTION [None]
  - PYREXIA [None]
  - MUSCULOSKELETAL PAIN [None]
  - DRUG INEFFECTIVE [None]
  - BODY TEMPERATURE INCREASED [None]
  - VULVOVAGINAL MYCOTIC INFECTION [None]
  - WHITE BLOOD CELL COUNT INCREASED [None]
  - ANXIETY [None]
  - GASTROINTESTINAL DISORDER [None]
  - FUNGAL INFECTION [None]
  - ENDODONTIC PROCEDURE [None]
  - HEADACHE [None]
  - UPPER RESPIRATORY TRACT INFECTION [None]
  - IRRITABLE BOWEL SYNDROME [None]
